FAERS Safety Report 14848425 (Version 2)
Quarter: 2018Q2

REPORT INFORMATION
  Report Type: Spontaneous
  Country: BE (occurrence: BE)
  Receive Date: 20180504
  Receipt Date: 20180508
  Transmission Date: 20180711
  Serious: Yes (Death, Life-Threatening, Hospitalization)
  Sender: FDA-Public Use
  Company Number: BE-ELI_LILLY_AND_COMPANY-BE201805001114

PATIENT
  Age: 42 Year
  Sex: Male
  Weight: 88 kg

DRUGS (15)
  1. AVELUMAB [Suspect]
     Active Substance: AVELUMAB
     Dosage: 900 MG, CYCLICAL
     Route: 065
     Dates: end: 20160620
  2. CARBOPLATIN. [Suspect]
     Active Substance: CARBOPLATIN
     Indication: NON-SMALL CELL LUNG CANCER
     Dosage: UNK UNK, DAILY
     Route: 042
     Dates: start: 20160718
  3. AVELUMAB [Suspect]
     Active Substance: AVELUMAB
     Dosage: 970 MG, CYCLICAL
     Route: 042
     Dates: start: 20160411
  4. QVAR [Concomitant]
     Active Substance: BECLOMETHASONE DIPROPIONATE
     Indication: COUGH
     Dosage: 50 UG, UNKNOWN
     Route: 065
     Dates: start: 20160427
  5. METHADONE [Concomitant]
     Active Substance: METHADONE HYDROCHLORIDE
     Indication: BONE PAIN
     Dosage: 10 MG, DAILY
     Route: 048
     Dates: start: 20160718
  6. AVELUMAB [Suspect]
     Active Substance: AVELUMAB
     Indication: NON-SMALL CELL LUNG CANCER
     Dosage: UNK UNK, UNKNOWN
     Route: 065
  7. AVELUMAB [Suspect]
     Active Substance: AVELUMAB
     Dosage: UNK UNK, DAILY
     Route: 065
  8. AVELUMAB [Suspect]
     Active Substance: AVELUMAB
     Dosage: UNK, UNKNOWN
     Route: 065
  9. VALIUM [Concomitant]
     Active Substance: DIAZEPAM
     Indication: BONE PAIN
     Dosage: 10 MG, DAILY
     Route: 048
     Dates: start: 20160719
  10. NEPHRON [Concomitant]
     Indication: BONE PAIN
     Dosage: 10 MG, DAILY
     Route: 048
     Dates: start: 20160720
  11. DAFALGAN [Concomitant]
     Active Substance: ACETAMINOPHEN
     Indication: BONE PAIN
     Dosage: 1 G, UNKNOWN
     Route: 048
     Dates: start: 20160531, end: 20160801
  12. GEMCITABINE HYDROCHLORIDE. [Suspect]
     Active Substance: GEMCITABINE HYDROCHLORIDE
     Indication: NON-SMALL CELL LUNG CANCER
     Dosage: UNK UNK, UNKNOWN
     Route: 042
     Dates: start: 20160718
  13. TEMESTA                            /00273201/ [Concomitant]
     Active Substance: LORAZEPAM
     Indication: INSOMNIA
     Route: 048
     Dates: start: 201607
  14. REDOMEX [Concomitant]
     Active Substance: AMITRIPTYLINE HYDROCHLORIDE
     Indication: BONE PAIN
     Dosage: 25 MG, DAILY
     Route: 048
     Dates: start: 20160617
  15. MOVICOL [Concomitant]
     Active Substance: POLYETHYLENE GLYCOL 3350\POTASSIUM CHLORIDE\SODIUM BICARBONATE\SODIUM CHLORIDE
     Indication: CONSTIPATION
     Dosage: UNK UNK, UNKNOWN
     Route: 048
     Dates: start: 201607

REACTIONS (3)
  - Febrile neutropenia [Recovered/Resolved]
  - Sepsis [Recovered/Resolved]
  - Pneumonia [Recovered/Resolved]

NARRATIVE: CASE EVENT DATE: 20160801
